FAERS Safety Report 13626585 (Version 1)
Quarter: 2017Q2

REPORT INFORMATION
  Report Type: Spontaneous
  Country: DE (occurrence: DE)
  Receive Date: 20170608
  Receipt Date: 20170608
  Transmission Date: 20170830
  Serious: Yes (Death, Life-Threatening, Other)
  Sender: FDA-Public Use
  Company Number: DE-TEVA-774153GER

PATIENT
  Age: 87 Year
  Sex: Male

DRUGS (15)
  1. ARIPIPRAZOL [Suspect]
     Active Substance: ARIPIPRAZOLE
     Route: 048
     Dates: start: 20161213, end: 20161225
  2. PREDNISOLONE. [Suspect]
     Active Substance: PREDNISOLONE
     Route: 048
     Dates: start: 20161222, end: 20161225
  3. ARIPIPRAZOL [Suspect]
     Active Substance: ARIPIPRAZOLE
     Route: 048
     Dates: start: 20161210, end: 20161212
  4. SERTRALINE [Concomitant]
     Active Substance: SERTRALINE HYDROCHLORIDE
     Route: 048
     Dates: start: 20161206, end: 20161225
  5. CLEXANE [Concomitant]
     Active Substance: ENOXAPARIN SODIUM
     Route: 058
     Dates: start: 20161209, end: 20161225
  6. CEFUROXIM [Concomitant]
     Active Substance: CEFUROXIME
     Route: 048
     Dates: start: 20161223, end: 20161225
  7. MADOPAR [Suspect]
     Active Substance: BENSERAZIDE HYDROCHLORIDE\LEVODOPA
     Dosage: 187.5-125 MG
     Route: 048
     Dates: end: 20161225
  8. MIRTAZAPIN [Concomitant]
     Active Substance: MIRTAZAPINE
     Dosage: 0-30 MG
     Route: 048
     Dates: start: 20161122, end: 20161225
  9. PANTOPRAZOL [Concomitant]
     Active Substance: PANTOPRAZOLE SODIUM
     Route: 048
     Dates: end: 20161225
  10. PREDNISOLONE. [Suspect]
     Active Substance: PREDNISOLONE
     Route: 048
     Dates: end: 20161221
  11. SERTRALINE [Concomitant]
     Active Substance: SERTRALINE HYDROCHLORIDE
     Route: 048
     Dates: start: 20161129, end: 20161205
  12. FOLSAEURE [Concomitant]
     Active Substance: FOLIC ACID
     Route: 048
     Dates: end: 20161225
  13. ACC [Concomitant]
     Active Substance: ACETYLCYSTEINE
     Route: 048
     Dates: start: 20161225, end: 20161225
  14. ARIPIPRAZOL [Suspect]
     Active Substance: ARIPIPRAZOLE
     Route: 048
     Dates: start: 20161208, end: 20161209
  15. SERTRALINE [Concomitant]
     Active Substance: SERTRALINE HYDROCHLORIDE
     Route: 048
     Dates: end: 20161128

REACTIONS (1)
  - Pneumonia [Fatal]
